FAERS Safety Report 4801416-1 (Version None)
Quarter: 2005Q4

REPORT INFORMATION
  Report Type: 
  Country: None (occurrence: None)
  Receive Date: 20051018
  Receipt Date: 20051004
  Transmission Date: 20060501
  Serious: Yes (Other)
  Sender: FDA-Public Use
  Company Number: DE-JNJFOC-20050805862

PATIENT
  Sex: Male
  Weight: 65 kg

DRUGS (2)
  1. HALDOL DECANOAT [Suspect]
     Indication: CATATONIA
  2. HALDOL [Suspect]
     Indication: CATATONIA
     Route: 048

REACTIONS (7)
  - ACCIDENT [None]
  - CATATONIA [None]
  - COGNITIVE DISORDER [None]
  - LEG AMPUTATION [None]
  - MENTAL IMPAIRMENT [None]
  - MICTURITION DISORDER [None]
  - URINARY RETENTION [None]
